FAERS Safety Report 5065284-8 (Version None)
Quarter: 2006Q3

REPORT INFORMATION
  Report Type: 
  Country: None (occurrence: None)
  Receive Date: 20060707
  Receipt Date: 20050707
  Transmission Date: 20061208
  Serious: Yes (Life-Threatening, Other)
  Sender: FDA-Public Use
  Company Number: SUS1-2005-00560

PATIENT
  Age: 56 Year
  Sex: Female

DRUGS (1)
  1. PENTASA [Suspect]
     Indication: CROHN'S DISEASE
     Dosage: 3. G DAILY, ORAL
     Route: 048
     Dates: start: 20040312, end: 20040519

REACTIONS (1)
  - APLASTIC ANAEMIA [None]
